FAERS Safety Report 7488488-3 (Version None)
Quarter: 2011Q2

REPORT INFORMATION
  Report Type: 
  Country: None (occurrence: None)
  Receive Date: 20110518
  Receipt Date: 20110513
  Transmission Date: 20111010
  Serious: Yes (Other)
  Sender: FDA-Public Use
  Company Number: JP-EISAI INC-E2090-01610-SPO-JP

PATIENT
  Age: 34 Year
  Sex: Female

DRUGS (3)
  1. GASMOTIN [Suspect]
     Route: 048
     Dates: start: 20100101, end: 20100201
  2. ZONISAMIDE [Suspect]
     Route: 048
     Dates: start: 20100101, end: 20100201
  3. ZONISAMIDE [Suspect]
     Route: 048
     Dates: start: 20100201, end: 20100201

REACTIONS (1)
  - DRUG ERUPTION [None]
